FAERS Safety Report 8239566-2 (Version None)
Quarter: 2012Q1

REPORT INFORMATION
  Report Type: 
  Country: None (occurrence: None)
  Receive Date: 20120328
  Receipt Date: 20120319
  Transmission Date: 20120608
  Serious: Yes (Other)
  Sender: FDA-Public Use
  Company Number: ES-JNJFOC-20111110732

PATIENT
  Age: 28 Year
  Sex: Female

DRUGS (5)
  1. USTEKINUMAB [Suspect]
     Route: 058
  2. ISONIAZID TAB [Concomitant]
     Indication: LYMPH NODE TUBERCULOSIS
  3. ETHAMBUTOL HYDROCHLORIDE [Concomitant]
     Indication: LYMPH NODE TUBERCULOSIS
  4. USTEKINUMAB [Suspect]
     Indication: PSORIASIS
     Route: 058
  5. PYRAZINAMIDE [Concomitant]
     Indication: LYMPH NODE TUBERCULOSIS

REACTIONS (2)
  - TRANSAMINASES INCREASED [None]
  - LYMPH NODE TUBERCULOSIS [None]
